FAERS Safety Report 7516892-3 (Version None)
Quarter: 2011Q2

REPORT INFORMATION
  Report Type: 
  Country: None (occurrence: None)
  Receive Date: 20110601
  Receipt Date: 20110522
  Transmission Date: 20111010
  Serious: Yes (Death)
  Sender: FDA-Public Use
  Company Number: FR-BAXTER-2011BH017658

PATIENT

DRUGS (5)
  1. RITUXIMAB [Suspect]
     Indication: DIFFUSE LARGE B-CELL LYMPHOMA
     Route: 065
  2. DOXORUBICIN HCL [Suspect]
     Indication: DIFFUSE LARGE B-CELL LYMPHOMA
     Route: 065
  3. CYCLOPHOSPHAMIDE [Suspect]
     Indication: DIFFUSE LARGE B-CELL LYMPHOMA
     Route: 065
  4. VINCRISTINE [Suspect]
     Indication: DIFFUSE LARGE B-CELL LYMPHOMA
     Route: 065
  5. PREDNISONE [Suspect]
     Indication: DIFFUSE LARGE B-CELL LYMPHOMA
     Route: 048

REACTIONS (1)
  - DEATH [None]
